FAERS Safety Report 8991062 (Version 1)
Quarter: 2012Q4

REPORT INFORMATION
  Report Type: Spontaneous
  Country: US (occurrence: None)
  Receive Date: 20121220
  Receipt Date: 20121220
  Transmission Date: 20130627
  Serious: Yes (Other)
  Sender: FDA-Public Use
  Company Number: 2012-170

PATIENT
  Age: 60 Year
  Sex: Female
  Weight: 64.1 kg

DRUGS (18)
  1. PRIALT [Suspect]
     Indication: INTRACTABLE PAIN
     Dosage: once/hour
     Route: 037
     Dates: start: 20120222, end: 20120224
  2. PRIALT [Suspect]
     Indication: PAIN
     Dosage: once/hour
     Route: 037
     Dates: start: 20120222, end: 20120224
  3. PRIALT [Suspect]
     Indication: LOW BACK PAIN
     Dosage: once/hour
     Route: 037
     Dates: start: 20120222, end: 20120224
  4. PRIALT [Suspect]
     Indication: INTRACTABLE PAIN
     Dosage: once/hour
     Route: 037
     Dates: start: 20120224, end: 20120229
  5. PRIALT [Suspect]
     Indication: PAIN
     Dosage: once/hour
     Route: 037
     Dates: start: 20120224, end: 20120229
  6. PRIALT [Suspect]
     Indication: LOW BACK PAIN
     Dosage: once/hour
     Route: 037
     Dates: start: 20120224, end: 20120229
  7. PRIALT [Suspect]
     Indication: INTRACTABLE PAIN
     Dosage: once/hour
     Route: 037
     Dates: start: 20120229, end: 20120307
  8. PRIALT [Suspect]
     Indication: PAIN
     Dosage: once/hour
     Route: 037
     Dates: start: 20120229, end: 20120307
  9. PRIALT [Suspect]
     Indication: LOW BACK PAIN
     Dosage: once/hour
     Route: 037
     Dates: start: 20120229, end: 20120307
  10. PRIALT [Suspect]
     Indication: INTRACTABLE PAIN
     Dosage: once/hour
     Route: 037
     Dates: start: 20120307
  11. PRIALT [Suspect]
     Indication: PAIN
     Dosage: once/hour
     Route: 037
     Dates: start: 20120307
  12. PRIALT [Suspect]
     Indication: LOW BACK PAIN
     Dosage: once/hour
     Route: 037
     Dates: start: 20120307
  13. DILAUDID (HYDROMORPHONE HYDROCHLORIDE) INJECTION [Suspect]
     Indication: INTRACTABLE PAIN
     Dosage: once/hour
     Route: 037
  14. TOPAMAX (TOPIRAMATE) [Concomitant]
  15. LEVOTHYROXINE (LEVOTHYROXINE) [Concomitant]
  16. ZYRTEC (CETIRIZINE HYDROCHLORIDE) [Concomitant]
  17. TRAMADOL (TRAMADOL) [Concomitant]
  18. NORCO 10/325 (HYDROCODONE BITARTRATE, PARACETAMOL) [Concomitant]

REACTIONS (4)
  - Cardiac disorder [None]
  - Confusional state [None]
  - Pain [None]
  - Oedema peripheral [None]
